FAERS Safety Report 6938457-4 (Version None)
Quarter: 2010Q3

REPORT INFORMATION
  Report Type: 
  Country: None (occurrence: None)
  Receive Date: 20100824
  Receipt Date: 20100819
  Transmission Date: 20110219
  Serious: Yes (Hospitalization, Other)
  Sender: FDA-Public Use
  Company Number: NO-BRISTOL-MYERS SQUIBB COMPANY-13533138

PATIENT
  Age: 71 Year
  Sex: Male
  Weight: 101 kg

DRUGS (13)
  1. IRBESARTAN [Suspect]
     Indication: HYPERTENSION
     Dates: start: 20040402, end: 20060702
  2. CLOPIDOGREL BISULFATE [Suspect]
     Indication: PROPHYLAXIS
     Dates: start: 20040405
  3. ASPIRIN [Suspect]
     Indication: PROPHYLAXIS
     Dates: start: 20040405
  4. KREDEX [Concomitant]
  5. BUMEX [Concomitant]
  6. LANOXIN [Concomitant]
  7. KAJOS [Concomitant]
  8. KLEXANE [Concomitant]
     Dosage: KLEXANO INJECTIOS 60 MG SUBCUTANEOUS.
     Route: 058
  9. MYCOSTATIN [Concomitant]
     Dosage: TIMES 4
  10. ZOPICLONE [Concomitant]
  11. CIPRALEX [Concomitant]
  12. PARACET [Concomitant]
  13. MAREVAN [Concomitant]
     Dates: start: 20050824, end: 20060715

REACTIONS (4)
  - FALL [None]
  - FEMORAL NECK FRACTURE [None]
  - HAEMORRHAGE INTRACRANIAL [None]
  - OPERATIVE HAEMORRHAGE [None]
